FAERS Safety Report 5679888-2 (Version None)
Quarter: 2008Q1

REPORT INFORMATION
  Report Type: 
  Country: None (occurrence: None)
  Receive Date: 20080324
  Receipt Date: 20080307
  Transmission Date: 20080703
  Serious: Yes (Life-Threatening)
  Sender: FDA-Public Use
  Company Number: S08-CAN-00985-01

PATIENT

DRUGS (1)
  1. CERVIDIL [Suspect]
     Dosage: 10 MG ONCE TRANSPLACENTAL
     Route: 064
     Dates: start: 20071013

REACTIONS (5)
  - BLOOD PH DECREASED [None]
  - DRUG EXPOSURE DURING PREGNANCY [None]
  - FOETAL DISORDER [None]
  - FOETAL HEART RATE ABNORMAL [None]
  - FOETAL HEART RATE DECELERATION [None]
